FAERS Safety Report 8054045-3 (Version None)
Quarter: 2012Q1

REPORT INFORMATION
  Report Type: 
  Country: None (occurrence: None)
  Receive Date: 20120118
  Receipt Date: 20120113
  Transmission Date: 20120608
  Serious: Yes (Hospitalization, Other)
  Sender: FDA-Public Use
  Company Number: US-ABBOTT-11P-163-0881996-00

PATIENT
  Sex: Female
  Weight: 44.038 kg

DRUGS (9)
  1. PROZAC [Concomitant]
     Indication: ANXIETY
  2. FOLIC ACID [Concomitant]
     Indication: PRODUCT USED FOR UNKNOWN INDICATION
  3. ASACOL [Concomitant]
     Indication: PRODUCT USED FOR UNKNOWN INDICATION
     Dosage: 3X DAILY ORAL AND 1 SUPPOSITORY NIGHTLY
  4. PROVENTIL [Concomitant]
     Indication: ASTHMA
  5. ALIGN [Concomitant]
     Indication: PRODUCT USED FOR UNKNOWN INDICATION
  6. HUMIRA [Suspect]
     Indication: CROHN'S DISEASE
     Dates: start: 20111104
  7. HUMIRA [Suspect]
     Dates: start: 20111227
  8. CLONAZEPAM [Concomitant]
     Indication: ANXIETY
     Dosage: DAILY DOSE: 0.5MG
  9. UNKNOWN BIRTH CONTROL [Concomitant]
     Indication: CONTRACEPTION

REACTIONS (12)
  - BLOOD TEST ABNORMAL [None]
  - RECTAL HAEMORRHAGE [None]
  - DIARRHOEA HAEMORRHAGIC [None]
  - WHITE BLOOD CELL COUNT INCREASED [None]
  - COLITIS [None]
  - INJECTION SITE HAEMATOMA [None]
  - ANAEMIA [None]
  - ABDOMINAL PAIN [None]
  - DEHYDRATION [None]
  - INFLAMMATION [None]
  - COMPUTERISED TOMOGRAM ABNORMAL [None]
  - CROHN'S DISEASE [None]
